FAERS Safety Report 5022508-0 (Version None)
Quarter: 2006Q2

REPORT INFORMATION
  Report Type: 
  Country: None (occurrence: None)
  Receive Date: 20060502
  Receipt Date: 20050907
  Transmission Date: 20061013
  Serious: Yes (Other)
  Sender: FDA-Public Use
  Company Number: PHEH2005US09994

PATIENT
  Age: 60 Year
  Sex: Female

DRUGS (1)
  1. LOTREL [Suspect]
     Dosage: ORAL
     Route: 048
     Dates: start: 19950101, end: 20050901

REACTIONS (4)
  - ANGIONEUROTIC OEDEMA [None]
  - HYPERSENSITIVITY [None]
  - SPEECH DISORDER [None]
  - TONGUE OEDEMA [None]
